FAERS Safety Report 24762128 (Version 1)
Quarter: 2024Q4

REPORT INFORMATION
  Report Type: Spontaneous
  Country: US (occurrence: US)
  Receive Date: 20241221
  Receipt Date: 20241221
  Transmission Date: 20250115
  Serious: No
  Sender: CELLTRION
  Company Number: US-CELLTRION INC.-2023US023432

PATIENT

DRUGS (3)
  1. TRUXIMA [Suspect]
     Active Substance: RITUXIMAB-ABBS
     Indication: Paraneoplastic syndrome
     Dosage: 10 MILLIGRAM PER MILLILITRE
     Route: 042
     Dates: start: 20231213
  2. TRUXIMA [Suspect]
     Active Substance: RITUXIMAB-ABBS
     Dosage: 10 MILLIGRAM PER MILLILITRE
     Route: 042
     Dates: start: 20231227
  3. PREDNISONE [Concomitant]
     Active Substance: PREDNISONE
     Indication: Paraneoplastic syndrome
     Dosage: 15 MG, ONCE DAILY
     Route: 048

REACTIONS (2)
  - Chills [Recovered/Resolved]
  - Off label use [Unknown]

NARRATIVE: CASE EVENT DATE: 20231227
